FAERS Safety Report 6065815-5 (Version None)
Quarter: 2009Q1

REPORT INFORMATION
  Report Type: 
  Country: None (occurrence: None)
  Receive Date: 20090205
  Receipt Date: 20090126
  Transmission Date: 20090719
  Serious: No
  Sender: FDA-Public Use
  Company Number: JP-JNJFOC-20090106196

PATIENT
  Age: 87 Year
  Sex: Female

DRUGS (3)
  1. FENTANYL [Suspect]
     Indication: LUNG NEOPLASM MALIGNANT
     Route: 062
  2. ACETAMINOPHEN [Concomitant]
     Route: 065
  3. MORPHINE [Concomitant]
     Route: 065

REACTIONS (2)
  - DRUG PRESCRIBING ERROR [None]
  - VOMITING [None]
